FAERS Safety Report 21994882 (Version 1)
Quarter: 2023Q1

REPORT INFORMATION
  Report Type: Report from Study
  Country: US (occurrence: US)
  Receive Date: 20230215
  Receipt Date: 20230215
  Transmission Date: 20230418
  Serious: Yes (Other)
  Sender: FDA-Public Use
  Company Number: US-MYLANLABS-2020289284

PATIENT
  Age: 86 Year
  Sex: Male

DRUGS (4)
  1. NORVASC [Interacting]
     Active Substance: AMLODIPINE BESYLATE
     Indication: Blood pressure abnormal
     Dosage: UNK
     Route: 065
  2. NIFEDIPINE [Interacting]
     Active Substance: NIFEDIPINE
     Indication: Blood pressure abnormal
     Dosage: UNK
  3. XTANDI [Interacting]
     Active Substance: ENZALUTAMIDE
     Indication: Prostate cancer
     Dosage: 160 MG, 1X/DAY (ONCE DAILY)
     Route: 048
     Dates: start: 202003
  4. TELMISARTAN [Concomitant]
     Active Substance: TELMISARTAN
     Dosage: UNK

REACTIONS (2)
  - Blood pressure increased [Unknown]
  - Drug interaction [Unknown]

NARRATIVE: CASE EVENT DATE: 20200303
